FAERS Safety Report 14384120 (Version 2)
Quarter: 2018Q1

REPORT INFORMATION
  Report Type: Spontaneous
  Country: US (occurrence: US)
  Receive Date: 20180115
  Receipt Date: 20180212
  Transmission Date: 20180509
  Serious: No
  Sender: FDA-Public Use
  Company Number: US-PFIZER INC-2018016090

PATIENT
  Age: 74 Year
  Sex: Male
  Weight: 63.5 kg

DRUGS (1)
  1. PANTOPRAZOLE [Suspect]
     Active Substance: PANTOPRAZOLE
     Dosage: UNK UNK, 2X/DAY (CUT PILL IN HALF AND TOOK ONE IN AM AND ONE IN PM)

REACTIONS (2)
  - Intentional product misuse [Unknown]
  - Abdominal discomfort [Unknown]
